FAERS Safety Report 8587074-1 (Version None)
Quarter: 2012Q3

REPORT INFORMATION
  Report Type: 
  Country: None (occurrence: None)
  Receive Date: 20120810
  Receipt Date: 19910617
  Transmission Date: 20120928
  Serious: Yes (Hospitalization)
  Sender: FDA-Public Use
  Company Number: US-ROCHE-1099241

PATIENT
  Age: 62 Year
  Sex: Male

DRUGS (4)
  1. HEPARIN [Concomitant]
     Dosage: 5000 CC
     Route: 042
  2. LIDOCAINE [Concomitant]
     Dosage: 30 CC
     Route: 041
  3. ACTIVASE [Suspect]
     Indication: MYOCARDIAL INFARCTION
     Dosage: 10 CC
     Route: 040
     Dates: start: 19910530
  4. ACTIVASE [Suspect]
     Route: 041

REACTIONS (2)
  - BRADYCARDIA [None]
  - SENSATION OF HEAVINESS [None]
